FAERS Safety Report 16781802 (Version 1)
Quarter: 2019Q4

REPORT INFORMATION
  Report Type: Spontaneous
  Country: US (occurrence: US)
  Receive Date: 20190906
  Receipt Date: 20190906
  Transmission Date: 20200122
  Serious: Yes (Death)
  Sender: FDA-Public Use
  Company Number: None

PATIENT
  Sex: Female

DRUGS (12)
  1. SPRYCEL [Suspect]
     Active Substance: DASATINIB
     Indication: CHRONIC MYELOID LEUKAEMIA
     Route: 048
     Dates: start: 20160204
  2. FAMOTIDINE. [Concomitant]
     Active Substance: FAMOTIDINE
  3. MONTELUKAST [Concomitant]
     Active Substance: MONTELUKAST SODIUM
  4. SPRYCEL [Suspect]
     Active Substance: DASATINIB
     Indication: CHRONIC MYELOID LEUKAEMIA
     Route: 048
     Dates: start: 20160204
  5. MULTIVIT [Concomitant]
     Active Substance: VITAMINS
  6. METOPROLOL. [Concomitant]
     Active Substance: METOPROLOL
  7. ALEVE [Concomitant]
     Active Substance: NAPROXEN SODIUM
  8. DILTIAZEM. [Concomitant]
     Active Substance: DILTIAZEM
  9. TYLENOL WITH CODEINE [Concomitant]
     Active Substance: ACETAMINOPHEN\CODEINE PHOSPHATE
  10. GINGKO [Concomitant]
     Active Substance: GINKGO
  11. BUPROPION. [Concomitant]
     Active Substance: BUPROPION
  12. VITAMIN D3 [Concomitant]
     Active Substance: CHOLECALCIFEROL

REACTIONS (1)
  - Death [None]
